FAERS Safety Report 4947575-1 (Version None)
Quarter: 2006Q1

REPORT INFORMATION
  Report Type: 
  Country: None (occurrence: None)
  Receive Date: 20060314
  Receipt Date: 20060302
  Transmission Date: 20060701
  Serious: Yes (Death)
  Sender: FDA-Public Use
  Company Number: 2005172597

PATIENT
  Sex: Female
  Weight: 86.1834 kg

DRUGS (3)
  1. NEURONTIN [Suspect]
     Indication: NEUROPATHY PERIPHERAL
  2. PERCOCET [Suspect]
     Indication: ILL-DEFINED DISORDER
  3. AMBIEN [Suspect]
     Indication: ILL-DEFINED DISORDER

REACTIONS (12)
  - BACTERIAL TEST POSITIVE [None]
  - CARDIAC DISORDER [None]
  - CELL DEATH [None]
  - COMPLETED SUICIDE [None]
  - DEPRESSED MOOD [None]
  - DRUG INEFFECTIVE [None]
  - DRUG TOXICITY [None]
  - FIBROSIS [None]
  - HEPATIC CONGESTION [None]
  - PANCREATIC DISORDER [None]
  - PULMONARY CONGESTION [None]
  - RENAL DISORDER [None]
